FAERS Safety Report 8058420-2 (Version None)
Quarter: 2012Q1

REPORT INFORMATION
  Report Type: 
  Country: None (occurrence: None)
  Receive Date: 20120120
  Receipt Date: 20120106
  Transmission Date: 20120608
  Serious: Yes (Other)
  Sender: FDA-Public Use
  Company Number: GB-MYLANLABS-2012S1000476

PATIENT
  Age: 74 Year
  Sex: Female
  Weight: 60.3 kg

DRUGS (9)
  1. CLOTRIMAZOLE [Concomitant]
     Indication: PRODUCT USED FOR UNKNOWN INDICATION
     Dates: start: 20111209, end: 20111219
  2. AMLODIPINE [Suspect]
     Indication: PRODUCT USED FOR UNKNOWN INDICATION
     Dates: start: 20111122
  3. CLOTRIMAZOLE [Concomitant]
     Dates: start: 20111115, end: 20111125
  4. PROCHLORPERAZINE [Concomitant]
     Indication: PRODUCT USED FOR UNKNOWN INDICATION
     Dates: start: 20111107, end: 20111114
  5. RAMIPRIL [Concomitant]
     Indication: PRODUCT USED FOR UNKNOWN INDICATION
     Dates: start: 20111013
  6. SUDOCREM [Concomitant]
     Indication: PRODUCT USED FOR UNKNOWN INDICATION
     Dates: start: 20110927, end: 20111004
  7. CLOTRIMAZOLE [Concomitant]
     Dates: start: 20110927, end: 20111007
  8. HUMALOG [Concomitant]
     Indication: PRODUCT USED FOR UNKNOWN INDICATION
     Dates: start: 20110927, end: 20111007
  9. TRIMETHOPRIM [Concomitant]
     Indication: PRODUCT USED FOR UNKNOWN INDICATION
     Dates: start: 20110905

REACTIONS (2)
  - VISION BLURRED [None]
  - DIZZINESS [None]
